FAERS Safety Report 8962831 (Version 1)
Quarter: 2012Q4

REPORT INFORMATION
  Report Type: 
  Country: US (occurrence: US)
  Receive Date: 20121214
  Receipt Date: 20121214
  Transmission Date: 20130627
  Serious: Yes (Other)
  Sender: FDA-Public Use
  Company Number: US-PFIZER INC-2012310017

PATIENT
  Age: 14 Year
  Sex: Female
  Weight: 34.47 kg

DRUGS (1)
  1. GENOTROPIN [Suspect]
     Indication: GROWTH RETARDATION
     Dosage: 2 mg, 6x/week
     Dates: start: 2000, end: 2010

REACTIONS (1)
  - Brain neoplasm benign [Recovered/Resolved]
